FAERS Safety Report 16477634 (Version 1)
Quarter: 2019Q2

REPORT INFORMATION
  Report Type: Spontaneous
  Country: JP (occurrence: JP)
  Receive Date: 20190626
  Receipt Date: 20190626
  Transmission Date: 20190711
  Serious: Yes (Other)
  Sender: FDA-Public Use
  Company Number: JP-LUPIN PHARMACEUTICALS INC.-2019-03806

PATIENT
  Age: 57 Year
  Sex: Female

DRUGS (1)
  1. TRIAMCINOLONE ACETONIDE. [Suspect]
     Active Substance: TRIAMCINOLONE ACETONIDE
     Indication: TRIGGER FINGER
     Dosage: 40 MILLIGRAM, INJECTION (1 ML OF 1% LIDOCAINE SOLUTION, TWICE AT A TWO MONTHS INTERVAL)
     Route: 065

REACTIONS (1)
  - Tendon rupture [Recovered/Resolved]
